FAERS Safety Report 7300681-9 (Version None)
Quarter: 2011Q1

REPORT INFORMATION
  Report Type: 
  Country: None (occurrence: None)
  Receive Date: 20110207
  Receipt Date: 20110124
  Transmission Date: 20110831
  Serious: Yes (Hospitalization)
  Sender: FDA-Public Use
  Company Number: 1000018606

PATIENT
  Age: 29 Year
  Sex: Male

DRUGS (3)
  1. CITALOPRAM HYDROBROMIDE [Suspect]
     Indication: DEPRESSION
     Dosage: 20 MG (20 MG, 1 IN 1 D), ORAL; 20 MG (20 MG, 1 IN 1 D),ORAL
     Route: 048
     Dates: start: 20101201
  2. CITALOPRAM HYDROBROMIDE [Suspect]
     Indication: DEPRESSION
     Dosage: 20 MG (20 MG, 1 IN 1 D), ORAL; 20 MG (20 MG, 1 IN 1 D),ORAL
     Route: 048
     Dates: start: 20110121, end: 20110121
  3. CITALOPRAM HYDROBROMIDE [Suspect]
     Indication: DEPRESSION
     Dosage: 40 MG (40 MG, 1 IN 1 D),ORAL
     Route: 048
     Dates: start: 20110122

REACTIONS (6)
  - HEART RATE INCREASED [None]
  - CHEST DISCOMFORT [None]
  - CARDIAC DISORDER [None]
  - DYSPNOEA [None]
  - DIZZINESS [None]
  - NAUSEA [None]
